FAERS Safety Report 19361181 (Version 1)
Quarter: 2021Q2

REPORT INFORMATION
  Report Type: Spontaneous
  Country: FR (occurrence: FR)
  Receive Date: 20210601
  Receipt Date: 20210601
  Transmission Date: 20210717
  Serious: Yes (Hospitalization)
  Sender: FDA-Public Use
  Company Number: FR-TEVA-2021-FR-1917240

PATIENT
  Age: 84 Year
  Sex: Male
  Weight: 84 kg

DRUGS (4)
  1. IRBESARTAN. [Suspect]
     Active Substance: IRBESARTAN
     Indication: HYPERTENSION
     Route: 048
     Dates: start: 202101, end: 202102
  2. PERINDOPRIL 4MG [Suspect]
     Active Substance: PERINDOPRIL
     Indication: HYPERTENSION
     Route: 048
     Dates: start: 202006, end: 202104
  3. METFORMINE 850MG [Concomitant]
     Indication: DIABETES MELLITUS
     Dates: end: 202102
  4. METFORMINE 850MG [Concomitant]
     Dates: start: 202102

REACTIONS (1)
  - Rash maculo-papular [Not Recovered/Not Resolved]

NARRATIVE: CASE EVENT DATE: 20210101
